FAERS Safety Report 6801309-4 (Version None)
Quarter: 2010Q2

REPORT INFORMATION
  Report Type: 
  Country: None (occurrence: None)
  Receive Date: 20100629
  Receipt Date: 20100618
  Transmission Date: 20101027
  Serious: Yes (Hospitalization, Other)
  Sender: FDA-Public Use
  Company Number: US-TEVA-238363USA

PATIENT
  Sex: Male
  Weight: 79.45 kg

DRUGS (33)
  1. PROPOFOL [Suspect]
     Indication: THROMBECTOMY
     Dates: start: 20080326, end: 20080326
  2. PROPOFOL [Suspect]
     Indication: ARTERIOVENOUS FISTULA OPERATION
  3. HEPARIN SODIUM [Suspect]
     Indication: THROMBECTOMY
     Dates: start: 20080326, end: 20080326
  4. HEPARIN SODIUM [Suspect]
     Indication: ARTERIOVENOUS FISTULA OPERATION
     Dates: start: 20080329, end: 20080329
  5. MORNIFLUMATE [Concomitant]
  6. ROSUVASTATIN [Concomitant]
  7. VENLAFAXINE [Concomitant]
  8. GABAPENTIN [Concomitant]
  9. EZETIMIBE [Concomitant]
  10. MONTELUKAST [Concomitant]
  11. ESOMEPRAZOLE MAGNESIUM [Concomitant]
  12. NICOTINIC ACID [Concomitant]
  13. IRBESARTAN [Concomitant]
  14. ALLOPURINOL [Concomitant]
  15. VENLAFAXINE [Concomitant]
  16. ALLOPURINOL [Concomitant]
  17. POTASSIUM CHLORIDE [Concomitant]
  18. ACETAMINOPHEN [Concomitant]
  19. ONDANSETRON [Concomitant]
  20. PROMETHAZINE [Concomitant]
  21. ZOLPIDEM TARTRATE [Concomitant]
  22. ESOMEPRAZOLE MAGNESIUM [Concomitant]
  23. LEVOSALBUTAMOL [Concomitant]
  24. DOXIDAN [Concomitant]
  25. BENADRYL ^ACHE^ [Concomitant]
  26. ALUDROX [Concomitant]
  27. AXOTAL [Concomitant]
  28. WARFARIN [Concomitant]
  29. INSULIN GLARGINE [Concomitant]
  30. FISH OIL [Concomitant]
  31. METOPROLOL [Concomitant]
  32. LORAZEPAM [Concomitant]
  33. ATORVASTATIN [Concomitant]

REACTIONS (23)
  - ABDOMINAL PAIN [None]
  - ANAEMIA [None]
  - ARTERIOVENOUS FISTULA THROMBOSIS [None]
  - ASPIRATION [None]
  - BLOOD PRESSURE DECREASED [None]
  - BLOOD PRESSURE FLUCTUATION [None]
  - CHEST PAIN [None]
  - CONFUSIONAL STATE [None]
  - DIARRHOEA [None]
  - HYPERCOAGULATION [None]
  - HYPOXIA [None]
  - KLEBSIELLA INFECTION [None]
  - LIVER FUNCTION TEST ABNORMAL [None]
  - MALNUTRITION [None]
  - ORGAN FAILURE [None]
  - PNEUMONIA STAPHYLOCOCCAL [None]
  - POST PROCEDURAL HAEMORRHAGE [None]
  - RENAL FAILURE ACUTE [None]
  - RESPIRATORY FAILURE [None]
  - SHOCK [None]
  - UPPER GASTROINTESTINAL HAEMORRHAGE [None]
  - URINARY TRACT INFECTION [None]
  - WHITE CLOT SYNDROME [None]
